FAERS Safety Report 4588860-5 (Version None)
Quarter: 2005Q1

REPORT INFORMATION
  Report Type: 
  Country: None (occurrence: None)
  Receive Date: 20050222
  Receipt Date: 20050105
  Transmission Date: 20050727
  Serious: Yes (Hospitalization)
  Sender: FDA-Public Use
  Company Number: FR-GLAXOSMITHKLINE-B0364005A

PATIENT
  Age: 69 Year
  Sex: Male
  Weight: 80 kg

DRUGS (7)
  1. ZOPHREN [Suspect]
     Indication: PROPHYLAXIS OF NAUSEA AND VOMITING
     Dosage: 8MG WEEKLY
     Route: 042
     Dates: start: 20041216, end: 20041216
  2. AUGMENTIN '125' [Suspect]
     Route: 065
     Dates: start: 20041210, end: 20041212
  3. SOLU-MEDROL [Suspect]
     Indication: VOMITING
     Dosage: 60MG WEEKLY
     Route: 042
     Dates: start: 20041216, end: 20041216
  4. CISPLATIN [Suspect]
     Indication: SQUAMOUS CELL CARCINOMA
     Dosage: 45MG WEEKLY
     Route: 042
     Dates: start: 20041216, end: 20041216
  5. TAXOTERE [Suspect]
     Indication: SQUAMOUS CELL CARCINOMA
     Dosage: 37MG WEEKLY
     Route: 042
     Dates: start: 20041216, end: 20041216
  6. ETOPOSIDE [Suspect]
     Indication: SQUAMOUS CELL CARCINOMA
     Dates: start: 20041228, end: 20041228
  7. RADIOTHERAPY [Concomitant]
     Indication: SQUAMOUS CELL CARCINOMA

REACTIONS (6)
  - CHEST DISCOMFORT [None]
  - LUNG INFECTION [None]
  - PRURITUS [None]
  - PYREXIA [None]
  - RASH [None]
  - RASH MACULO-PAPULAR [None]
